FAERS Safety Report 4879982-X (Version None)
Quarter: 2006Q1

REPORT INFORMATION
  Report Type: 
  Country: None (occurrence: None)
  Receive Date: 20060111
  Receipt Date: 20050923
  Transmission Date: 20060701
  Serious: No
  Sender: FDA-Public Use
  Company Number: 2005S1000199

PATIENT

DRUGS (4)
  1. CUBICIN [Suspect]
     Indication: PULMONARY EMBOLISM
  2. CUBICIN [Suspect]
     Indication: STAPHYLOCOCCAL SEPSIS
  3. WARFARIN SODIUM [Concomitant]
  4. LINEZOLID [Concomitant]

REACTIONS (1)
  - INTERNATIONAL NORMALISED RATIO INCREASED [None]
